FAERS Safety Report 7440608-2 (Version None)
Quarter: 2011Q2

REPORT INFORMATION
  Report Type: 
  Country: None (occurrence: None)
  Receive Date: 20110427
  Receipt Date: 20110419
  Transmission Date: 20111010
  Serious: Yes (Disabling)
  Sender: FDA-Public Use
  Company Number: B0714894A

PATIENT
  Sex: Female
  Weight: 8.9 kg

DRUGS (3)
  1. URSO 250 [Concomitant]
     Dosage: 3IUAX PER DAY
     Route: 048
     Dates: end: 20011106
  2. ALKERAN [Suspect]
     Indication: STEM CELL TRANSPLANT
     Dosage: 100MGM2 PER DAY
     Route: 042
     Dates: start: 20010919, end: 20010919
  3. ALLOID G [Concomitant]
     Dosage: 30ML PER DAY
     Route: 048
     Dates: start: 20010917, end: 20011009

REACTIONS (2)
  - MUCOUS MEMBRANE DISORDER [None]
  - STOMATITIS [None]
